FAERS Safety Report 17749709 (Version 1)
Quarter: 2020Q2

REPORT INFORMATION
  Report Type: Spontaneous
  Country: US (occurrence: US)
  Receive Date: 20200506
  Receipt Date: 20200506
  Transmission Date: 20200714
  Serious: Yes (Life-Threatening, Hospitalization, Other)
  Sender: FDA-Public Use
  Company Number: US-LUPIN PHARMACEUTICALS INC.-2020-01885

PATIENT
  Age: 76 Year
  Sex: Female

DRUGS (3)
  1. DULOXETINE. [Suspect]
     Active Substance: DULOXETINE
     Indication: PRODUCT USED FOR UNKNOWN INDICATION
     Dosage: 60 MILLIGRAM (OVER 100 PILLS OF METOPROLOL, DULOXETINE AND LOSARTAN; OVERDOSE)
     Route: 048
  2. METOPROLOL. [Suspect]
     Active Substance: METOPROLOL
     Indication: PRODUCT USED FOR UNKNOWN INDICATION
     Dosage: 50 MILLIGRAM (OVER 100 PILLS OF METOPROLOL, DULOXETINE AND LOSARTAN; OVERDOSE)
     Route: 048
  3. LOSARTAN POTASSIUM TABLET [Suspect]
     Active Substance: LOSARTAN POTASSIUM
     Indication: PRODUCT USED FOR UNKNOWN INDICATION
     Dosage: 100 MILLIGRAM (OVER 100 PILLS OF METOPROLOL, DULOXETINE AND LOSARTAN; OVERDOSE)
     Route: 048

REACTIONS (5)
  - Depressed level of consciousness [Unknown]
  - Hypotension [Unknown]
  - Bradycardia [Unknown]
  - Intentional overdose [Unknown]
  - Hypothermia [Unknown]
